FAERS Safety Report 7708134-0 (Version None)
Quarter: 2011Q3

REPORT INFORMATION
  Report Type: 
  Country: None (occurrence: None)
  Receive Date: 20110825
  Receipt Date: 20110817
  Transmission Date: 20111222
  Serious: No
  Sender: FDA-Public Use
  Company Number: US-BIOGENIDEC-2010BI036187

PATIENT
  Age: 52 Year
  Sex: Female

DRUGS (1)
  1. TYSABRI [Suspect]
     Indication: MULTIPLE SCLEROSIS
     Route: 042
     Dates: start: 20100614, end: 20100809

REACTIONS (8)
  - PAIN IN EXTREMITY [None]
  - TENDERNESS [None]
  - ASTHENIA [None]
  - PYREXIA [None]
  - PAIN [None]
  - PRURITUS [None]
  - DRUG SPECIFIC ANTIBODY PRESENT [None]
  - MYALGIA [None]
